FAERS Safety Report 7510669-0 (Version None)
Quarter: 2011Q2

REPORT INFORMATION
  Report Type: 
  Country: None (occurrence: None)
  Receive Date: 20110530
  Receipt Date: 20110524
  Transmission Date: 20111010
  Serious: Yes (Hospitalization)
  Sender: FDA-Public Use
  Company Number: PHHO2011GB08942

PATIENT
  Sex: Female
  Weight: 91.1 kg

DRUGS (6)
  1. ALLOPURINOL [Concomitant]
  2. GLEEVEC [Suspect]
     Indication: PULMONARY ARTERIAL HYPERTENSION
     Dosage: 200 MG, QD
     Route: 048
     Dates: start: 20100331
  3. OMEPRAZOLE [Concomitant]
  4. SPIRONOLACTONE [Concomitant]
  5. SILDENAFIL CITRATE [Concomitant]
  6. WARFARIN SODIUM [Concomitant]

REACTIONS (2)
  - RIGHT VENTRICULAR FAILURE [None]
  - CONDITION AGGRAVATED [None]
